FAERS Safety Report 9187456 (Version 1)
Quarter: 2013Q1

REPORT INFORMATION
  Report Type: Spontaneous
  Country: FR (occurrence: FR)
  Receive Date: 20130325
  Receipt Date: 20130325
  Transmission Date: 20140127
  Serious: Yes (Hospitalization)
  Sender: FDA-Public Use
  Company Number: PHHY2013FR027330

PATIENT
  Age: 69 Year
  Sex: Female

DRUGS (5)
  1. STALEVO [Suspect]
     Indication: PARKINSON^S DISEASE
     Dosage: UNK
     Dates: end: 20130302
  2. MOTILIUM [Suspect]
     Dosage: UNK
     Dates: start: 20130227
  3. APOKINON [Suspect]
     Dosage: UNK
     Dates: start: 20130228, end: 20130304
  4. MODOPAR [Suspect]
     Indication: PARKINSON^S DISEASE
     Dosage: UNK
  5. REQUIP [Suspect]
     Indication: PARKINSON^S DISEASE
     Dosage: UNK

REACTIONS (2)
  - Atrial fibrillation [Unknown]
  - Palpitations [Unknown]
